FAERS Safety Report 5943354-7 (Version None)
Quarter: 2008Q4

REPORT INFORMATION
  Report Type: 
  Country: None (occurrence: None)
  Receive Date: 20081106
  Receipt Date: 20081022
  Transmission Date: 20090506
  Serious: Yes (Hospitalization)
  Sender: FDA-Public Use
  Company Number: JP-EISAI MEDICAL RESEARCH-E2090-00574-SPO-JP

PATIENT
  Age: 65 Year
  Sex: Male

DRUGS (1)
  1. EXCEGRAN [Suspect]
     Indication: DRUG USE FOR UNKNOWN INDICATION
     Route: 048
     Dates: start: 20080903, end: 20080101

REACTIONS (2)
  - PYREXIA [None]
  - RASH [None]
